FAERS Safety Report 16431199 (Version 1)
Quarter: 2019Q2

REPORT INFORMATION
  Report Type: Spontaneous
  Country: SA (occurrence: SA)
  Receive Date: 20190614
  Receipt Date: 20190614
  Transmission Date: 20190711
  Serious: Yes (Hospitalization, Other)
  Sender: FDA-Public Use
  Company Number: SA-GLAXOSMITHKLINE-AE2019GSK106761

PATIENT
  Age: 20 Year
  Sex: Male
  Weight: 37 kg

DRUGS (6)
  1. LEVETIRACETAM. [Concomitant]
     Active Substance: LEVETIRACETAM
     Indication: EPILEPSY
     Dosage: 1.5 G, QD
     Route: 042
  2. MEROPENEM. [Concomitant]
     Active Substance: MEROPENEM
     Indication: PNEUMONIA
     Dosage: UNK
  3. LAMOTRIGINE. [Interacting]
     Active Substance: LAMOTRIGINE
     Dosage: 100 MG, BID
  4. VALPROIC ACID. [Interacting]
     Active Substance: VALPROIC ACID
     Indication: MYOCLONIC EPILEPSY
     Dosage: 500 MG, BID
  5. LEVOFLOXACIN. [Concomitant]
     Active Substance: LEVOFLOXACIN
     Indication: PNEUMONIA
     Dosage: UNK
  6. LAMOTRIGINE. [Suspect]
     Active Substance: LAMOTRIGINE
     Indication: STATUS EPILEPTICUS
     Dosage: 50 MG, UNK

REACTIONS (4)
  - Tremor [Unknown]
  - Pancreatitis [Unknown]
  - Drug interaction [Unknown]
  - Nystagmus [Unknown]
